FAERS Safety Report 24068973 (Version 2)
Quarter: 2024Q3

REPORT INFORMATION
  Report Type: Report from Study
  Country: ES (occurrence: ES)
  Receive Date: 20240710
  Receipt Date: 20240710
  Transmission Date: 20241017
  Serious: No
  Sender: ROCHE
  Company Number: ES-ROCHE-3110710

PATIENT
  Age: 62 Year

DRUGS (1)
  1. ALECTINIB [Suspect]
     Active Substance: ALECTINIB
     Indication: Non-small cell lung cancer
     Dosage: NEXT DOSE: 25/MAY/2021
     Route: 065
     Dates: start: 20190205

REACTIONS (9)
  - Arthralgia [Unknown]
  - Oedema peripheral [Unknown]
  - Fatigue [Unknown]
  - Meniscus injury [Unknown]
  - Rippling muscle disease [Unknown]
  - Dyspnoea [Unknown]
  - Blood bilirubin increased [Unknown]
  - Sleep apnoea syndrome [Unknown]
  - Groin pain [Unknown]

NARRATIVE: CASE EVENT DATE: 20220118
